FAERS Safety Report 8859141 (Version 1)
Quarter: 2012Q4

REPORT INFORMATION
  Report Type: Spontaneous
  Country: US (occurrence: None)
  Receive Date: 20121024
  Receipt Date: 20121024
  Transmission Date: 20130627
  Serious: Yes (Other)
  Sender: FDA-Public Use
  Company Number: None

PATIENT
  Age: 50 Year
  Sex: Female

DRUGS (5)
  1. CYMBALTA [Suspect]
     Dosage: 30mg a day
     Dates: start: 20120512, end: 20120612
  2. CYMBALTA [Suspect]
     Dosage: 60 mg a day
     Dates: start: 20120612, end: 20120812
  3. PRILOSEC [Concomitant]
  4. ABILIFY [Concomitant]
  5. PREDNISONE [Concomitant]

REACTIONS (10)
  - Haemorrhage [None]
  - Vaginal haemorrhage [None]
  - Breast haemorrhage [None]
  - Ulcer haemorrhage [None]
  - Staphylococcal infection [None]
  - Injection site haemorrhage [None]
  - Oedema [None]
  - Hallucinations, mixed [None]
  - Respiratory disorder [None]
  - Stress [None]
